FAERS Safety Report 26148224 (Version 1)
Quarter: 2025Q4

REPORT INFORMATION
  Report Type: Spontaneous
  Country: CO (occurrence: CO)
  Receive Date: 20251212
  Receipt Date: 20251212
  Transmission Date: 20260117
  Serious: Yes (Other)
  Sender: REGENERON
  Company Number: CO-BAYER-2025A163200

PATIENT
  Sex: Male

DRUGS (1)
  1. EYLEA [Suspect]
     Active Substance: AFLIBERCEPT
     Indication: Retinal vascular occlusion
     Dosage: 40 MG, Q2MON, SOLUTION FOR INJECTION, 40 MG/ML
     Route: 031
     Dates: start: 20241002

REACTIONS (2)
  - Blindness unilateral [Recovering/Resolving]
  - Cataract operation [Recovering/Resolving]

NARRATIVE: CASE EVENT DATE: 20251201
